FAERS Safety Report 7879534-3 (Version None)
Quarter: 2011Q4

REPORT INFORMATION
  Report Type: 
  Country: None (occurrence: None)
  Receive Date: 20111101
  Receipt Date: 20111019
  Transmission Date: 20120403
  Serious: Yes (Hospitalization)
  Sender: FDA-Public Use
  Company Number: US-GLAXOSMITHKLINE-A0877921A

PATIENT
  Age: 46 Year
  Sex: Female
  Weight: 85 kg

DRUGS (8)
  1. CYMBALTA [Concomitant]
  2. AMARYL [Concomitant]
  3. AVANDIA [Suspect]
     Indication: DIABETES MELLITUS
     Dosage: 4MG PER DAY
     Route: 048
     Dates: start: 20050414, end: 20050514
  4. TEVETEN [Concomitant]
  5. TOPROL-XL [Concomitant]
  6. ALTOPREV [Concomitant]
  7. PREVACID [Concomitant]
  8. AVANDAMET [Suspect]
     Indication: DIABETES MELLITUS
     Route: 048
     Dates: start: 20031017, end: 20050301

REACTIONS (1)
  - CEREBROVASCULAR ACCIDENT [None]
